FAERS Safety Report 10171109 (Version 3)
Quarter: 2014Q4

REPORT INFORMATION
  Report Type: Spontaneous
  Country: US (occurrence: US)
  Receive Date: 20140514
  Receipt Date: 20141028
  Transmission Date: 20150528
  Serious: Yes (Disabling, Other)
  Sender: FDA-Public Use
  Company Number: US-JNJFOC-20140501343

PATIENT
  Age: 51 Year
  Sex: Female
  Weight: 74.84 kg

DRUGS (17)
  1. LITHIUM [Suspect]
     Active Substance: LITHIUM CARBONATE
     Indication: CRANIOCEREBRAL INJURY
     Route: 065
  2. RISPERDAL CONSTA [Suspect]
     Active Substance: RISPERIDONE
     Indication: BIPOLAR DISORDER
     Route: 030
  3. RISPERDAL [Suspect]
     Active Substance: RISPERIDONE
     Indication: CRANIOCEREBRAL INJURY
     Route: 065
  4. HALDOL [Suspect]
     Active Substance: HALOPERIDOL
     Indication: SCHIZOPHRENIA
     Route: 065
  5. INVEGA SUSTENNA [Suspect]
     Active Substance: PALIPERIDONE PALMITATE
     Indication: CRANIOCEREBRAL INJURY
     Route: 030
     Dates: end: 201305
  6. DEPAKOTE [Suspect]
     Active Substance: DIVALPROEX SODIUM
     Indication: PRODUCT USED FOR UNKNOWN INDICATION
     Route: 065
  7. RISPERDAL [Suspect]
     Active Substance: RISPERIDONE
     Indication: BIPOLAR DISORDER
     Route: 065
  8. RISPERDAL CONSTA [Suspect]
     Active Substance: RISPERIDONE
     Indication: SCHIZOPHRENIA
     Route: 030
  9. HALDOL [Suspect]
     Active Substance: HALOPERIDOL
     Indication: BIPOLAR DISORDER
     Route: 065
  10. RISPERIDONE. [Suspect]
     Active Substance: RISPERIDONE
     Indication: PRODUCT USED FOR UNKNOWN INDICATION
     Route: 048
  11. RISPERDAL CONSTA [Suspect]
     Active Substance: RISPERIDONE
     Indication: CRANIOCEREBRAL INJURY
     Route: 030
  12. HALDOL [Suspect]
     Active Substance: HALOPERIDOL
     Indication: CRANIOCEREBRAL INJURY
     Route: 065
  13. LITHIUM [Suspect]
     Active Substance: LITHIUM CARBONATE
     Indication: SCHIZOPHRENIA
     Route: 065
  14. LITHIUM [Suspect]
     Active Substance: LITHIUM CARBONATE
     Indication: BIPOLAR DISORDER
     Route: 065
  15. RISPERDAL [Suspect]
     Active Substance: RISPERIDONE
     Indication: SCHIZOPHRENIA
     Route: 065
  16. INVEGA SUSTENNA [Suspect]
     Active Substance: PALIPERIDONE PALMITATE
     Indication: SCHIZOPHRENIA
     Route: 030
     Dates: end: 201305
  17. INVEGA SUSTENNA [Suspect]
     Active Substance: PALIPERIDONE PALMITATE
     Indication: BIPOLAR DISORDER
     Route: 030
     Dates: end: 201305

REACTIONS (17)
  - Overdose [Unknown]
  - Brain injury [Not Recovered/Not Resolved]
  - Amenorrhoea [Unknown]
  - Drooling [Unknown]
  - Factor VIII deficiency [Unknown]
  - Blood disorder [Unknown]
  - Exposure to toxic agent [Not Recovered/Not Resolved]
  - Skin disorder [Unknown]
  - Drug ineffective [Unknown]
  - Accident [Unknown]
  - Haemorrhage [Unknown]
  - Disability [Unknown]
  - Drug abuse [Unknown]
  - Hormone level abnormal [Unknown]
  - Breast disorder [Unknown]
  - Adverse event [Unknown]
  - Incorrect dose administered [Not Recovered/Not Resolved]

NARRATIVE: CASE EVENT DATE: 2004
